FAERS Safety Report 15748557 (Version 2)
Quarter: 2018Q4

REPORT INFORMATION
  Report Type: Report from Study
  Country: CA (occurrence: CA)
  Receive Date: 20181221
  Receipt Date: 20181227
  Transmission Date: 20190205
  Serious: Yes (Other)
  Sender: FDA-Public Use
  Company Number: CA-ROCHE-2173474

PATIENT
  Age: 39 Year
  Sex: Female

DRUGS (2)
  1. OCREVUS [Suspect]
     Active Substance: OCRELIZUMAB
     Indication: RELAPSING-REMITTING MULTIPLE SCLEROSIS
     Dosage: 300 MG DAY 0. DAY 1 THEN 600 MG EVERY 6 MONTHS?LAST INFUSION: 09/AUG/2018
     Route: 042
     Dates: start: 20180724
  2. COVERSYL [Concomitant]
     Active Substance: PERINDOPRIL
     Indication: HYPERTENSION
     Route: 065

REACTIONS (7)
  - Skin plaque [Unknown]
  - Coagulopathy [Unknown]
  - Scratch [Unknown]
  - Oral herpes [Not Recovered/Not Resolved]
  - Wound haemorrhage [Unknown]
  - Vaginal haemorrhage [Not Recovered/Not Resolved]
  - Vaginal infection [Not Recovered/Not Resolved]

NARRATIVE: CASE EVENT DATE: 20180817
